FAERS Safety Report 9642701 (Version 1)
Quarter: 2013Q4

REPORT INFORMATION
  Report Type: Spontaneous
  Country: FR (occurrence: FR)
  Receive Date: 20131024
  Receipt Date: 20131024
  Transmission Date: 20140711
  Serious: Yes (Other)
  Sender: FDA-Public Use
  Company Number: FR-UCBSA-100895

PATIENT
  Age: 72 Year
  Sex: Female

DRUGS (3)
  1. NEUPRO [Suspect]
     Route: 062
     Dates: start: 201211
  2. NEUPRO [Suspect]
     Route: 062
     Dates: start: 201305
  3. MADOPAR [Suspect]
     Dosage: 125(100MG/25MG 3/DAY)
     Route: 048
     Dates: start: 201211

REACTIONS (3)
  - Dry mouth [Not Recovered/Not Resolved]
  - Oral discomfort [Not Recovered/Not Resolved]
  - Wrong technique in drug usage process [Unknown]
